FAERS Safety Report 14481103 (Version 2)
Quarter: 2019Q2

REPORT INFORMATION
  Report Type: Spontaneous
  Country: IT (occurrence: IT)
  Receive Date: 20180202
  Receipt Date: 20190510
  Transmission Date: 20190711
  Serious: Yes (Hospitalization, Other)
  Sender: FDA-Public Use
  Company Number: IT-MYLANLABS-2018M1007669

PATIENT
  Age: 67 Year
  Sex: Male

DRUGS (1)
  1. METFORMIN [Suspect]
     Active Substance: METFORMIN HYDROCHLORIDE
     Indication: TYPE 2 DIABETES MELLITUS
     Dosage: UNK

REACTIONS (5)
  - Lactic acidosis [Recovered/Resolved]
  - Vomiting [Unknown]
  - Acute kidney injury [Recovered/Resolved]
  - Shock [Recovered/Resolved]
  - Urine albumin/creatinine ratio abnormal [Recovered/Resolved]
